FAERS Safety Report 9386065 (Version 1)
Quarter: 2013Q3

REPORT INFORMATION
  Report Type: Spontaneous
  Country: US (occurrence: US)
  Receive Date: 20130706
  Receipt Date: 20130706
  Transmission Date: 20140515
  Serious: Yes (Hospitalization)
  Sender: FDA-Public Use
  Company Number: US-B.I. PHARMACEUTICALS,INC./RIDGEFIELD-2013-BI-18820BP

PATIENT
  Age: 53 Year
  Sex: Female
  Weight: 42 kg

DRUGS (7)
  1. SPIRIVA [Suspect]
     Indication: EMPHYSEMA
     Dosage: 18 MCG
     Route: 055
     Dates: start: 2010
  2. ADVAIR [Concomitant]
     Indication: EMPHYSEMA
     Dosage: FORMULATION: (INHALATION AEROSOL) STRENGTH: 500 MCG / 50 MCG; DAILY DOSE: 1000 MCG / 100 MCG
     Route: 055
  3. ALBUTEROL INHALER [Concomitant]
     Indication: EMPHYSEMA
     Dosage: FORMULATION: (INHALATION AEROSOL)
     Route: 055
  4. ABUTEROL NEBULIZER [Concomitant]
     Indication: EMPHYSEMA
     Route: 055
  5. LYRICA [Concomitant]
     Indication: EXOSTOSIS
     Dosage: 150 MG
     Route: 048
  6. OXYGEN [Concomitant]
     Indication: EMPHYSEMA
     Dosage: STRENGTH: 2 LITERS
     Route: 055
  7. LEXAPRO [Concomitant]
     Indication: DEPRESSION
     Dosage: 20 MG
     Route: 048

REACTIONS (3)
  - Colon cancer [Not Recovered/Not Resolved]
  - Abdominal pain upper [Not Recovered/Not Resolved]
  - Weight decreased [Not Recovered/Not Resolved]
